FAERS Safety Report 9682834 (Version 1)
Quarter: 2013Q4

REPORT INFORMATION
  Report Type: Spontaneous
  Country: AU (occurrence: AU)
  Receive Date: 20131112
  Receipt Date: 20131112
  Transmission Date: 20140711
  Serious: Yes (Death)
  Sender: FDA-Public Use
  Company Number: PHHY2013AU127622

PATIENT
  Sex: Female

DRUGS (3)
  1. TASIGNA [Suspect]
     Indication: BLAST CRISIS IN MYELOGENOUS LEUKAEMIA
     Dosage: 400 MG, BID
     Route: 048
  2. AVAPRO HCT [Concomitant]
  3. PRAVACHOL [Concomitant]

REACTIONS (3)
  - Cerebral haemorrhage [Fatal]
  - Chronic myeloid leukaemia [Fatal]
  - Malignant neoplasm progression [Fatal]
